FAERS Safety Report 6296383-0 (Version None)
Quarter: 2009Q3

REPORT INFORMATION
  Report Type: 
  Country: None (occurrence: None)
  Receive Date: 20090804
  Receipt Date: 20090721
  Transmission Date: 20100115
  Serious: Yes (Other)
  Sender: FDA-Public Use
  Company Number: JP-ROCHE-641079

PATIENT
  Sex: Female
  Weight: 69 kg

DRUGS (8)
  1. COPEGUS [Suspect]
     Route: 048
     Dates: start: 20090615, end: 20090622
  2. PEGASYS [Suspect]
     Route: 058
     Dates: start: 20090615, end: 20090622
  3. URSO 250 [Concomitant]
     Dosage: DOSAGE FORM REPORTED AS: ORAL FORMULATION (NOT OTHERWISE SPECIFIED)
     Route: 048
  4. ALESION [Concomitant]
     Route: 048
  5. PROMAC [Concomitant]
     Route: 048
  6. TAKEPRON [Concomitant]
     Route: 048
  7. DEPAS [Concomitant]
     Route: 048
  8. AMOBAN [Concomitant]
     Route: 048

REACTIONS (1)
  - STAPHYLOCOCCAL SEPSIS [None]
